FAERS Safety Report 23847731 (Version 3)
Quarter: 2024Q4

REPORT INFORMATION
  Report Type: Report from Study
  Country: GB (occurrence: GB)
  Receive Date: 20240513
  Receipt Date: 20241008
  Transmission Date: 20250114
  Serious: Yes (Other)
  Sender: SANDOZ
  Company Number: GB-SANDOZ-SDZ2024GB042603

PATIENT
  Sex: Female

DRUGS (2)
  1. HYRIMOZ [Suspect]
     Active Substance: ADALIMUMAB-ADAZ
     Indication: Crohn^s disease
     Dosage: 40 MG, Q2W (EOW); STRENGTH; 40 MG/0.8 ML; 2 PRE-FILLED DISPOSABLE INJECTION
     Route: 058
     Dates: start: 20240320
  2. HYRIMOZ [Suspect]
     Active Substance: ADALIMUMAB-ADAZ
     Dosage: 40 MG, Q2W; 2 PRE-FILLED DISPOSABLE INJECTION; STRENGTH: 40MG/0.4ML
     Route: 058
     Dates: start: 20240321

REACTIONS (8)
  - Tooth extraction [Unknown]
  - Oral pain [Recovered/Resolved]
  - Malaise [Not Recovered/Not Resolved]
  - Lip pain [Not Recovered/Not Resolved]
  - Mental disorder [Unknown]
  - Fatigue [Unknown]
  - Headache [Not Recovered/Not Resolved]
  - Product use issue [Unknown]
